FAERS Safety Report 24704166 (Version 2)
Quarter: 2024Q4

REPORT INFORMATION
  Report Type: Spontaneous
  Country: NL (occurrence: NL)
  Receive Date: 20241206
  Receipt Date: 20241216
  Transmission Date: 20250114
  Serious: Yes (Hospitalization, Other)
  Sender: AUROBINDO
  Company Number: NL-LRB-01015239

PATIENT
  Age: 6 Hour
  Sex: Female

DRUGS (1)
  1. AMITRIPTYLINE HYDROCHLORIDE [Suspect]
     Active Substance: AMITRIPTYLINE HYDROCHLORIDE
     Indication: Dyspepsia
     Dosage: 125 MILLIGRAM, ONCE A DAY
     Route: 048
     Dates: start: 20210101

REACTIONS (3)
  - Hypotonia neonatal [Recovering/Resolving]
  - Poor feeding infant [Recovering/Resolving]
  - Maternal exposure during pregnancy [Unknown]
